FAERS Safety Report 6081181-3 (Version None)
Quarter: 2009Q1

REPORT INFORMATION
  Report Type: 
  Country: None (occurrence: None)
  Receive Date: 20090217
  Receipt Date: 20090209
  Transmission Date: 20090719
  Serious: Yes (Other)
  Sender: FDA-Public Use
  Company Number: KR-GILEAD-2009-0020315

PATIENT

DRUGS (1)
  1. HEPSERA [Suspect]
     Indication: HEPATITIS B

REACTIONS (2)
  - VIRAL LOAD INCREASED [None]
  - VIRAL MUTATION IDENTIFIED [None]
